FAERS Safety Report 6394648-5 (Version None)
Quarter: 2009Q4

REPORT INFORMATION
  Report Type: 
  Country: None (occurrence: None)
  Receive Date: 20091009
  Receipt Date: 20091002
  Transmission Date: 20100525
  Serious: Yes (Hospitalization)
  Sender: FDA-Public Use
  Company Number: FR-JNJFOC-20091000846

PATIENT
  Age: 78 Year
  Sex: Female

DRUGS (2)
  1. TAVANIC [Suspect]
     Indication: DEVICE RELATED INFECTION
     Route: 048
     Dates: start: 20090818, end: 20090914
  2. DALACINE [Suspect]
     Indication: DEVICE RELATED INFECTION
     Route: 048
     Dates: start: 20090818, end: 20090914

REACTIONS (7)
  - CONJUNCTIVITIS [None]
  - CYTOLYTIC HEPATITIS [None]
  - ERYTHEMA MULTIFORME [None]
  - HEADACHE [None]
  - MYALGIA [None]
  - PRURITUS GENERALISED [None]
  - RASH MACULO-PAPULAR [None]
